FAERS Safety Report 4848187-0 (Version None)
Quarter: 2005Q4

REPORT INFORMATION
  Report Type: 
  Country: None (occurrence: None)
  Receive Date: 20051208
  Receipt Date: 20051118
  Transmission Date: 20060501
  Serious: Yes (Other)
  Sender: FDA-Public Use
  Company Number: CA-ABBOTT-05P-028-0317878-00

PATIENT
  Sex: Female
  Weight: 91.82 kg

DRUGS (1)
  1. MERIDIA [Suspect]
     Indication: WEIGHT CONTROL
     Route: 048
     Dates: start: 20050909, end: 20051031

REACTIONS (1)
  - HEPATITIS ACUTE [None]
